FAERS Safety Report 9274571 (Version 1)
Quarter: 2013Q2

REPORT INFORMATION
  Report Type: Spontaneous
  Country: US (occurrence: US)
  Receive Date: 20130507
  Receipt Date: 20130507
  Transmission Date: 20140414
  Serious: Yes (Hospitalization)
  Sender: FDA-Public Use
  Company Number: US-009507513-2012SP011076

PATIENT
  Age: 20 Year
  Sex: Female

DRUGS (4)
  1. PRINIVIL [Suspect]
     Route: 048
  2. SAPHRIS [Suspect]
     Indication: BIPOLAR DISORDER
     Dosage: 5 MG, HS
     Route: 048
     Dates: start: 201112
  3. DEPAKOTE [Concomitant]
  4. KLONOPIN [Concomitant]

REACTIONS (4)
  - Hypotension [Recovered/Resolved]
  - Dizziness [Unknown]
  - Underdose [Recovered/Resolved]
  - Inappropriate schedule of drug administration [Recovered/Resolved]
